FAERS Safety Report 6511760-8 (Version None)
Quarter: 2009Q4

REPORT INFORMATION
  Report Type: 
  Country: None (occurrence: None)
  Receive Date: 20091222
  Receipt Date: 20090403
  Transmission Date: 20100525
  Serious: No
  Sender: FDA-Public Use
  Company Number: US-ASTRAZENECA-2009UW08491

PATIENT
  Sex: Female

DRUGS (2)
  1. CRESTOR [Suspect]
     Route: 048
     Dates: start: 20090324, end: 20090402
  2. NORVASC [Concomitant]
     Indication: HYPERTENSION

REACTIONS (7)
  - ABDOMINAL PAIN [None]
  - ASTHENIA [None]
  - ERYTHEMA [None]
  - HEADACHE [None]
  - MYALGIA [None]
  - NAUSEA [None]
  - OEDEMA PERIPHERAL [None]
